FAERS Safety Report 5714217-7 (Version None)
Quarter: 2008Q2

REPORT INFORMATION
  Report Type: 
  Country: None (occurrence: None)
  Receive Date: 20080423
  Receipt Date: 20070323
  Transmission Date: 20081010
  Serious: No
  Sender: FDA-Public Use
  Company Number: US-KINGPHARMUSA00001-K200700359

PATIENT

DRUGS (5)
  1. SKELAXIN [Suspect]
     Indication: MUSCLE SPASMS
     Dosage: 800 MG, SINGLE
     Route: 048
     Dates: start: 20070322, end: 20070322
  2. SKELAXIN [Suspect]
     Indication: MYALGIA
  3. SYNTHROID [Concomitant]
     Indication: THYROID DISORDER
     Dosage: .5 MCG, QD
     Route: 048
  4. HYDROCODONE BITARTRATE [Concomitant]
     Indication: PAIN
     Dosage: UNK, BID
     Route: 048
  5. TEMAZEPAM [Concomitant]
     Indication: SLEEP DISORDER
     Dosage: AT BEDTIME, QD
     Route: 048

REACTIONS (4)
  - DYSPNOEA [None]
  - HYPERSENSITIVITY [None]
  - NAUSEA [None]
  - PRURITUS [None]
